FAERS Safety Report 5385350-7 (Version None)
Quarter: 2007Q3

REPORT INFORMATION
  Report Type: 
  Country: None (occurrence: None)
  Receive Date: 20070709
  Receipt Date: 20070709
  Transmission Date: 20080115
  Serious: Yes (Disabling, Other)
  Sender: FDA-Public Use
  Company Number: None

PATIENT
  Sex: Female
  Weight: 67.1324 kg

DRUGS (2)
  1. RISPERDAL [Suspect]
     Dosage: TWICE DAILY PO
     Route: 048
     Dates: start: 20020626, end: 20021014
  2. SEROQUEL [Suspect]
     Dosage: TWICE DAILY PO
     Route: 048
     Dates: start: 20021015, end: 20030116

REACTIONS (9)
  - CARDIAC FAILURE CONGESTIVE [None]
  - CEREBROVASCULAR ACCIDENT [None]
  - CONTUSION [None]
  - JOINT SPRAIN [None]
  - PHARMACEUTICAL PRODUCT COMPLAINT [None]
  - PNEUMONIA [None]
  - TARDIVE DYSKINESIA [None]
  - TENDON RUPTURE [None]
  - TOOTH FRACTURE [None]
